FAERS Safety Report 7740484-4 (Version None)
Quarter: 2011Q3

REPORT INFORMATION
  Report Type: 
  Country: None (occurrence: None)
  Receive Date: 20110909
  Receipt Date: 20110830
  Transmission Date: 20111222
  Serious: Yes (Disabling, Other)
  Sender: FDA-Public Use
  Company Number: CA-BAYER-2011-064687

PATIENT
  Age: 31 Year
  Sex: Female
  Weight: 66 kg

DRUGS (1)
  1. MIRENA [Suspect]
     Indication: CONTRACEPTION
     Dosage: 20 MCG/24HR, CONT
     Route: 015
     Dates: start: 20100101

REACTIONS (19)
  - ABDOMINAL PAIN [None]
  - BREAST PAIN [None]
  - DRUG INTOLERANCE [None]
  - MOOD ALTERED [None]
  - DIZZINESS [None]
  - FLUID RETENTION [None]
  - NAUSEA [None]
  - VAGINAL INFECTION [None]
  - HYPOAESTHESIA [None]
  - BREAST OEDEMA [None]
  - HYPERHIDROSIS [None]
  - IRRITABILITY [None]
  - MUSCLE SPASMS [None]
  - OLIGOMENORRHOEA [None]
  - VAGINAL HAEMORRHAGE [None]
  - MENSTRUAL DISORDER [None]
  - WEIGHT INCREASED [None]
  - ACNE [None]
  - HEADACHE [None]
